FAERS Safety Report 8469867 (Version 6)
Quarter: 2012Q4

REPORT INFORMATION
  Report Type: 
  Country: JP (occurrence: JP)
  Receive Date: 20120321
  Receipt Date: 20121105
  Transmission Date: 20130627
  Serious: Yes (Death, Hospitalization)
  Sender: FDA-Public Use
  Company Number: JP-ROCHE-1047721

PATIENT
  Age: 64 Year
  Sex: Male
  Weight: 60 kg

DRUGS (8)
  1. AVASTIN [Suspect]
     Indication: RECTAL CANCER METASTATIC
     Dosage: Dosage is uncertain.
     Route: 041
     Dates: start: 20100701, end: 20100827
  2. 5-FU [Concomitant]
     Indication: RECTAL CANCER METASTATIC
     Route: 041
     Dates: start: 20100616, end: 20100827
  3. ELPLAT [Concomitant]
     Indication: RECTAL CANCER METASTATIC
     Route: 041
     Dates: start: 20100616, end: 20100827
  4. LEVOFOLINATE [Concomitant]
     Indication: RECTAL CANCER METASTATIC
     Route: 041
     Dates: start: 20100616, end: 20100827
  5. DIOVAN [Concomitant]
     Indication: HYPERTENSION
     Route: 048
     Dates: start: 20100511
  6. ACTOS [Concomitant]
     Route: 048
     Dates: start: 20100511
  7. DEXART [Concomitant]
     Indication: PREMEDICATION
     Route: 041
     Dates: start: 20100616, end: 20100827
  8. GRANISETRON [Concomitant]
     Indication: PREMEDICATION
     Route: 041
     Dates: start: 20100616, end: 20100827

REACTIONS (4)
  - Gastrointestinal perforation [Recovered/Resolved]
  - Rectal cancer metastatic [Fatal]
  - Haemoglobin decreased [Recovered/Resolved]
  - Red blood cell count decreased [Recovered/Resolved]
